FAERS Safety Report 12288420 (Version 3)
Quarter: 2016Q3

REPORT INFORMATION
  Report Type: Report from Study
  Country: JP (occurrence: JP)
  Receive Date: 20160420
  Receipt Date: 20160811
  Transmission Date: 20161109
  Serious: Yes (Death)
  Sender: FDA-Public Use
  Company Number: JP-ASTRAZENECA-2016SE41872

PATIENT
  Age: 63 Year
  Sex: Male
  Weight: 76 kg

DRUGS (16)
  1. ARTIST [Concomitant]
     Active Substance: CARVEDILOL
     Indication: ANGINA PECTORIS
     Dosage: DOSE UNKNOWN
     Route: 048
     Dates: end: 20160204
  2. BAYASPIRIN [Concomitant]
     Active Substance: ASPIRIN
     Indication: ANGINA PECTORIS
     Dosage: NUMBER OF SEPARATE DOSAGES UNKNOWN
     Route: 065
     Dates: end: 20160204
  3. DOGMATYL [Concomitant]
     Active Substance: SULPIRIDE
     Indication: DEPRESSION
     Dosage: NUMBER OF SEPARATE DOSAGES UNKNOWN
     Route: 048
     Dates: start: 20151013, end: 20151109
  4. REZALTAS [Concomitant]
     Active Substance: AZELNIDIPINE\OLMESARTAN MEDOXOMIL
     Indication: HYPERTENSION
     Route: 048
     Dates: end: 20150930
  5. LOSARTAN K [Concomitant]
     Active Substance: LOSARTAN POTASSIUM
     Indication: HYPERTENSION
     Dosage: NUMBER OF SEPARATE DOSAGES UNKNOWN
     Route: 048
     Dates: start: 20151001, end: 20160204
  6. BROTIZOLAM [Concomitant]
     Active Substance: BROTIZOLAM
     Indication: INSOMNIA
     Dosage: DOSE UNKNOWN
     Route: 048
     Dates: end: 20160204
  7. NEXIUM [Suspect]
     Active Substance: ESOMEPRAZOLE MAGNESIUM
     Indication: PROPHYLAXIS AGAINST GASTROINTESTINAL ULCER
     Route: 048
     Dates: start: 20140306, end: 20160204
  8. PLETAAL [Concomitant]
     Active Substance: CILOSTAZOL
     Indication: ANGINA PECTORIS
     Dosage: NUMBER OF SEPARATE DOSAGES UNKNOWN
     Route: 048
     Dates: start: 20150611, end: 20160204
  9. TROCHES(COMP.) [Concomitant]
     Indication: PHARYNGITIS
     Dosage: NUMBER OF SEPARATE DOSAGES UNKNOWN
     Route: 048
     Dates: start: 20150804, end: 20150809
  10. LEVEMIR [Concomitant]
     Active Substance: INSULIN DETEMIR
     Indication: TYPE 2 DIABETES MELLITUS
     Dosage: BEFORE BEDTIME
     Route: 065
     Dates: end: 20160204
  11. ALOSITOL [Concomitant]
     Active Substance: ALLOPURINOL
     Indication: HYPERURICAEMIA
     Dosage: DOSE UNKNOWN
     Route: 048
     Dates: end: 20151110
  12. URSO [Concomitant]
     Active Substance: URSODIOL
     Indication: CIRRHOSIS ALCOHOLIC
     Dosage: DOSE UNKNOWN
     Route: 048
     Dates: end: 20160204
  13. OLMETEC [Concomitant]
     Active Substance: OLMESARTAN MEDOXOMIL
     Indication: HYPERTENSION
     Route: 048
     Dates: end: 20150820
  14. CALBLOCK [Concomitant]
     Active Substance: AZELNIDIPINE
     Indication: HYPERTENSION
     Dosage: NUMBER OF SEPARATE DOSAGES UNKNOWN
     Route: 048
     Dates: start: 20151001, end: 20160204
  15. CALONAL [Concomitant]
     Active Substance: ACETAMINOPHEN
     Indication: BACK PAIN
     Dosage: NUMBER OF SEPARATE DOSAGES UNKNOWN
     Route: 048
     Dates: start: 20150713, end: 20150718
  16. NOVORAPID [Concomitant]
     Active Substance: INSULIN ASPART
     Indication: TYPE 2 DIABETES MELLITUS
     Dosage: 8 IN MORNING, 8 IN LUNCHTIME, 12 IN EVENING (OD)
     Route: 065
     Dates: end: 20160204

REACTIONS (8)
  - Death [Fatal]
  - Depression [Not Recovered/Not Resolved]
  - Subcutaneous abscess [Recovering/Resolving]
  - Decreased appetite [Not Recovered/Not Resolved]
  - Back pain [Recovering/Resolving]
  - Pharyngitis [Recovering/Resolving]
  - Constipation [Unknown]
  - Infected dermal cyst [Recovering/Resolving]

NARRATIVE: CASE EVENT DATE: 201507
